FAERS Safety Report 21411630 (Version 1)
Quarter: 2022Q4

REPORT INFORMATION
  Report Type: Spontaneous
  Country: JP (occurrence: JP)
  Receive Date: 20221005
  Receipt Date: 20221005
  Transmission Date: 20230112
  Serious: No
  Sender: FDA-Public Use
  Company Number: JP-CHEMOCENTRYX, INC.-2022JPCCXI0327

PATIENT

DRUGS (12)
  1. TAVNEOS [Suspect]
     Active Substance: AVACOPAN
     Indication: Granulomatosis with polyangiitis
     Dosage: (60 MG,1 IN 1 D)
     Route: 048
     Dates: start: 20220708, end: 20220802
  2. CELLCEPT [Suspect]
     Active Substance: MYCOPHENOLATE MOFETIL
     Indication: Granulomatosis with polyangiitis
     Dosage: (1000 MG,1 IN 1 D)
     Route: 048
     Dates: start: 20220623, end: 20220713
  3. PREDONINE [Concomitant]
     Active Substance: PREDNISOLONE
     Indication: Granulomatosis with polyangiitis
     Dosage: (40 MG, 1 IN 1 D)
     Route: 048
     Dates: start: 20220623, end: 20220818
  4. DAIPMEN (SULFAMETMOXAZOLE, TRIMETMOPRIM) [Concomitant]
     Indication: Product used for unknown indication
     Route: 048
  5. ALFACALCIDOL [Concomitant]
     Active Substance: ALFACALCIDOL
     Indication: Product used for unknown indication
     Route: 048
  6. VONOPRAZAN FUMARATE [Concomitant]
     Active Substance: VONOPRAZAN FUMARATE
     Indication: Product used for unknown indication
     Route: 048
  7. LOSARTAN POTASSIUM [Concomitant]
     Active Substance: LOSARTAN POTASSIUM
     Indication: Product used for unknown indication
     Route: 048
  8. ABILIFY [Concomitant]
     Active Substance: ARIPIPRAZOLE
     Indication: Product used for unknown indication
     Route: 048
  9. ROZEREM [Concomitant]
     Active Substance: RAMELTEON
     Indication: Product used for unknown indication
     Route: 048
  10. DAYVIGO [Concomitant]
     Active Substance: LEMBOREXANT
     Indication: Product used for unknown indication
     Route: 048
  11. PEROSPIRONE HYDROCHLORIDE [Concomitant]
     Active Substance: PEROSPIRONE HYDROCHLORIDE
     Indication: Product used for unknown indication
     Route: 048
  12. SODIUM FERROUS CITRATE [Concomitant]
     Active Substance: SODIUM FERROUS CITRATE
     Indication: Product used for unknown indication
     Route: 048

REACTIONS (1)
  - Oedema [Recovering/Resolving]

NARRATIVE: CASE EVENT DATE: 20220711
